FAERS Safety Report 10187983 (Version 1)
Quarter: 2014Q2

REPORT INFORMATION
  Report Type: Spontaneous
  Country: US (occurrence: US)
  Receive Date: 20140522
  Receipt Date: 20140522
  Transmission Date: 20141212
  Serious: No
  Sender: FDA-Public Use
  Company Number: US-SA-2013SA105378

PATIENT
  Age: 61 Year
  Sex: Female

DRUGS (3)
  1. SOLOSTAR [Suspect]
     Indication: TYPE 2 DIABETES MELLITUS
     Dosage: PRODUCT STARTED ONE AND HALF YEAR AGO.
  2. LANTUS SOLOSTAR [Suspect]
     Indication: TYPE 2 DIABETES MELLITUS
     Dosage: PRODUCT STARTED ONE AND HALF YEARS AGO. DOSE:65 UNIT(S)
     Route: 051
  3. NOVOLOG [Concomitant]

REACTIONS (6)
  - Tremor [Unknown]
  - Dyslexia [Unknown]
  - Injection site injury [Unknown]
  - Injection site haemorrhage [Unknown]
  - Injection site pain [Unknown]
  - Drug dose omission [Unknown]
